FAERS Safety Report 7714280-8 (Version None)
Quarter: 2011Q3

REPORT INFORMATION
  Report Type: 
  Country: None (occurrence: None)
  Receive Date: 20110829
  Receipt Date: 20110819
  Transmission Date: 20111222
  Serious: No
  Sender: FDA-Public Use
  Company Number: US-BIOGENIDEC-2011BI032088

PATIENT
  Sex: Female

DRUGS (2)
  1. TYSABRI [Suspect]
     Indication: MULTIPLE SCLEROSIS
     Route: 042
     Dates: start: 20100923
  2. BENADRYL [Concomitant]
     Route: 042

REACTIONS (5)
  - MALAISE [None]
  - MENTAL IMPAIRMENT [None]
  - SKIN ATROPHY [None]
  - OEDEMA PERIPHERAL [None]
  - FATIGUE [None]
